FAERS Safety Report 6369468-8 (Version None)
Quarter: 2009Q3

REPORT INFORMATION
  Report Type: 
  Country: None (occurrence: None)
  Receive Date: 20090923
  Receipt Date: 20090909
  Transmission Date: 20100115
  Serious: Yes (Hospitalization)
  Sender: FDA-Public Use
  Company Number: TR-RANBAXY-2009RR-27500

PATIENT
  Age: 44 Year
  Sex: Female

DRUGS (3)
  1. FLUOXETINE [Suspect]
     Indication: PSYCHIATRIC SYMPTOM
     Dosage: UNK MG, QD
  2. CYCLOSPORINE [Suspect]
     Dosage: 300 MG, QD
  3. ACITRETIN [Suspect]
     Dosage: 35 MG, QD

REACTIONS (2)
  - DRUG INTERACTION [None]
  - PUSTULAR PSORIASIS [None]
